FAERS Safety Report 7626884-1 (Version None)
Quarter: 2011Q3

REPORT INFORMATION
  Report Type: 
  Country: None (occurrence: None)
  Receive Date: 20110701
  Receipt Date: 20100511
  Transmission Date: 20111222
  Serious: Yes (Hospitalization)
  Sender: FDA-Public Use
  Company Number: 7004602

PATIENT
  Age: 54 Year
  Sex: Female
  Weight: 55 kg

DRUGS (5)
  1. REBIF [Suspect]
     Indication: MULTIPLE SCLEROSIS
     Dosage: 44 MCG, 3 IN 1 WK, SUBCUTANEOUS
     Route: 058
     Dates: start: 20100211, end: 20100306
  2. HYDROCHLOROTHIAZIDE [Concomitant]
  3. BACLOFEN [Concomitant]
  4. SPIRONOLACTONE [Concomitant]
  5. WELLBUTRIN [Concomitant]

REACTIONS (1)
  - MYOSITIS [None]
